APPROVED DRUG PRODUCT: TETRACYCLINE HYDROCHLORIDE
Active Ingredient: TETRACYCLINE HYDROCHLORIDE
Strength: 250MG
Dosage Form/Route: CAPSULE;ORAL
Application: A210674 | Product #001 | TE Code: AB
Applicant: AMNEAL PHARMACEUTICALS OF NY LLC
Approved: Sep 18, 2018 | RLD: No | RS: No | Type: RX